FAERS Safety Report 19569249 (Version 2)
Quarter: 2021Q4

REPORT INFORMATION
  Report Type: Report from Study
  Country: EG (occurrence: EG)
  Receive Date: 20210716
  Receipt Date: 20211020
  Transmission Date: 20220304
  Serious: Yes (Congenital Anomaly, Other)
  Sender: FDA-Public Use
  Company Number: EG-GILEAD-2021-0540442

PATIENT

DRUGS (1)
  1. TENOFOVIR DISOPROXIL FUMARATE [Suspect]
     Active Substance: TENOFOVIR DISOPROXIL FUMARATE
     Indication: Hepatitis B
     Dosage: 300 MG, QD
     Route: 064

REACTIONS (2)
  - Congenital hydrocephalus [Unknown]
  - Foetal exposure during pregnancy [Recovered/Resolved]
